FAERS Safety Report 7212742-3 (Version None)
Quarter: 2010Q4

REPORT INFORMATION
  Report Type: 
  Country: None (occurrence: None)
  Receive Date: 20101229
  Receipt Date: 20101221
  Transmission Date: 20110411
  Serious: Yes (Life-Threatening, Hospitalization)
  Sender: FDA-Public Use
  Company Number: 003138

PATIENT
  Age: 78 Year
  Sex: Male
  Weight: 96 kg

DRUGS (7)
  1. PEGAPTANIB SODIUM : PLACEBO (PEGAPTANIB SODIUM) PEGAPTANIB SODIUM; PLA [Suspect]
     Dosage: 0.3 MG, EVERY 6  WEEKS, INTRAOCULAR
     Route: 031
  2. ENALAPRIL MALEATE [Concomitant]
  3. FUROESE (FUROSEMIDE) [Concomitant]
  4. ASPIRIN [Concomitant]
  5. LEVOTHYROXINE SODIUM [Concomitant]
  6. HUMALOG [Concomitant]
  7. HUMINSULIN BASAL (INSULIN HUMAN) [Concomitant]

REACTIONS (3)
  - CEREBROVASCULAR ACCIDENT [None]
  - CONVULSION [None]
  - PNEUMONIA [None]
